FAERS Safety Report 17757165 (Version 1)
Quarter: 2020Q2

REPORT INFORMATION
  Report Type: Report from Study
  Country: CO (occurrence: CO)
  Receive Date: 20200507
  Receipt Date: 20200507
  Transmission Date: 20200714
  Serious: Yes (Other)
  Sender: FDA-Public Use
  Company Number: NVSC2019CO068350

PATIENT
  Age: 10 Year
  Sex: Female
  Weight: 33 kg

DRUGS (2)
  1. OMNITROPE [Suspect]
     Active Substance: SOMATROPIN
     Indication: GROWTH HORMONE DEFICIENCY
     Dosage: 1.4 MG, QN
     Route: 058
     Dates: start: 20161110, end: 201905
  2. OMNITROPE [Suspect]
     Active Substance: SOMATROPIN
     Indication: SMALL FOR DATES BABY
     Dosage: 1.4 MG, QN
     Route: 058
     Dates: start: 20191001

REACTIONS (8)
  - Headache [Recovered/Resolved]
  - Adenoiditis [Recovered/Resolved]
  - Inguinal hernia [Unknown]
  - Constipation [Unknown]
  - Sinusitis [Recovered/Resolved]
  - Headache [Unknown]
  - Headache [Recovered/Resolved]
  - Influenza [Unknown]

NARRATIVE: CASE EVENT DATE: 20190501
